FAERS Safety Report 23404545 (Version 1)
Quarter: 2024Q1

REPORT INFORMATION
  Report Type: Spontaneous
  Country: NL (occurrence: NL)
  Receive Date: 20240116
  Receipt Date: 20240116
  Transmission Date: 20240410
  Serious: Yes (Life-Threatening, Hospitalization, Other)
  Sender: FDA-Public Use
  Company Number: None

PATIENT
  Age: 19 Year
  Sex: Female
  Weight: 76 kg

DRUGS (2)
  1. OLANZAPINE [Suspect]
     Active Substance: OLANZAPINE
     Indication: Personality disorder
     Dosage: 7.5 MG, ONCE PER DAY (1 TIME PER DAY 1.5 PIECE (7.5MG))
     Dates: start: 20160914
  2. LORAZEPAM [Concomitant]
     Active Substance: LORAZEPAM
     Indication: Product used for unknown indication
     Dosage: 1 MG,  UNK

REACTIONS (3)
  - Depressed level of consciousness [Unknown]
  - Electrocardiogram QT interval abnormal [Unknown]
  - Snoring [Unknown]
